FAERS Safety Report 15373692 (Version 5)
Quarter: 2019Q1

REPORT INFORMATION
  Report Type: Spontaneous
  Country: US (occurrence: US)
  Receive Date: 20180912
  Receipt Date: 20190115
  Transmission Date: 20190417
  Serious: Yes (Other)
  Sender: FDA-Public Use
  Company Number: US-PFIZER INC-2018362661

PATIENT
  Age: 57 Year
  Sex: Female
  Weight: 95.24 kg

DRUGS (2)
  1. XELJANZ XR [Suspect]
     Active Substance: TOFACITINIB CITRATE
     Indication: RHEUMATOID ARTHRITIS
     Dosage: 11 MG, 1X/DAY (11MG BY MOUTH ONE IN MORNING)
     Route: 048
     Dates: start: 201809, end: 201810
  2. CYMBALTA [Concomitant]
     Active Substance: DULOXETINE HYDROCHLORIDE
     Indication: FIBROMYALGIA
     Dosage: UNK

REACTIONS (25)
  - Influenza [Unknown]
  - Night sweats [Recovered/Resolved]
  - Weight decreased [Unknown]
  - Myocardial infarction [Unknown]
  - Hepatic failure [Recovered/Resolved with Sequelae]
  - Drug ineffective [Unknown]
  - Pyrexia [Recovered/Resolved]
  - Toothache [Recovered/Resolved]
  - Musculoskeletal pain [Recovered/Resolved]
  - Fatigue [Recovered/Resolved]
  - Malaise [Recovered/Resolved]
  - Vision blurred [Not Recovered/Not Resolved]
  - Asthenia [Unknown]
  - Dyschromatopsia [Recovered/Resolved]
  - Head injury [Recovered/Resolved]
  - Lethargy [Unknown]
  - Incoherent [Recovered/Resolved]
  - Decreased appetite [Unknown]
  - Nausea [Recovered/Resolved]
  - Chromaturia [Unknown]
  - Chest discomfort [Recovered/Resolved]
  - Hyperhidrosis [Unknown]
  - Migraine [Recovering/Resolving]
  - Somnolence [Unknown]
  - Road traffic accident [Unknown]

NARRATIVE: CASE EVENT DATE: 201809
